FAERS Safety Report 13240478 (Version 1)
Quarter: 2017Q1

REPORT INFORMATION
  Report Type: Spontaneous
  Country: US (occurrence: US)
  Receive Date: 20170216
  Receipt Date: 20170216
  Transmission Date: 20170428
  Serious: No
  Sender: FDA-Public Use
  Company Number: US-RELYPSA-RLY2016003569

PATIENT
  Age: 51 Year
  Sex: Male

DRUGS (7)
  1. VELTASSA [Suspect]
     Active Substance: PATIROMER
     Indication: PRODUCT USED FOR UNKNOWN INDICATION
     Dosage: 8.4 G, QD
     Route: 065
     Dates: start: 20160922, end: 20161110
  2. OMEPRAZOLE. [Concomitant]
     Active Substance: OMEPRAZOLE
  3. LYRICA [Concomitant]
     Active Substance: PREGABALIN
  4. NORCO [Concomitant]
     Active Substance: ACETAMINOPHEN\HYDROCODONE BITARTRATE
  5. CARVEDILOL. [Concomitant]
     Active Substance: CARVEDILOL
  6. CALCIUM ACETATE. [Concomitant]
     Active Substance: CALCIUM ACETATE
  7. RENVELA [Concomitant]
     Active Substance: SEVELAMER CARBONATE
     Dosage: UNK

REACTIONS (2)
  - Treatment noncompliance [Unknown]
  - Malaise [Recovered/Resolved]

NARRATIVE: CASE EVENT DATE: 201610
